FAERS Safety Report 16624812 (Version 2)
Quarter: 2019Q3

REPORT INFORMATION
  Report Type: Spontaneous
  Country: US (occurrence: US)
  Receive Date: 20190724
  Receipt Date: 20190904
  Transmission Date: 20191004
  Serious: Yes (Other)
  Sender: FDA-Public Use
  Company Number: US-PFIZER INC-2019311731

PATIENT
  Age: 59 Year

DRUGS (1)
  1. LYRICA [Suspect]
     Active Substance: PREGABALIN
     Dosage: UNK

REACTIONS (12)
  - Emotional disorder [Unknown]
  - Glaucoma [Unknown]
  - Impaired driving ability [Unknown]
  - Arthropathy [Unknown]
  - Malaise [Unknown]
  - Autoimmune disorder [Unknown]
  - Colitis ulcerative [Unknown]
  - Limb injury [Unknown]
  - Loss of personal independence in daily activities [Unknown]
  - Myasthenia gravis [Unknown]
  - Hypoaesthesia [Unknown]
  - Blindness [Unknown]
